FAERS Safety Report 4424881-0 (Version None)
Quarter: 2004Q3

REPORT INFORMATION
  Report Type: 
  Country: None (occurrence: None)
  Receive Date: 20040812
  Receipt Date: 20040804
  Transmission Date: 20050211
  Serious: Yes (Hospitalization)
  Sender: FDA-Public Use
  Company Number: JP-MERCK-0408USA00566

PATIENT
  Age: 77 Year
  Sex: Female

DRUGS (5)
  1. SAWACILLIN [Suspect]
     Indication: INFECTION PROPHYLAXIS
     Route: 048
     Dates: start: 20040714, end: 20040715
  2. VICCILLIN [Suspect]
     Indication: INFECTION PROPHYLAXIS
     Route: 065
     Dates: start: 20040713, end: 20040714
  3. PRIMAXIN [Suspect]
     Indication: INFECTION PROPHYLAXIS
     Route: 042
     Dates: start: 20040717, end: 20040719
  4. FOSMICIN [Suspect]
     Indication: INFECTION PROPHYLAXIS
     Route: 048
     Dates: start: 20040715, end: 20040716
  5. PREDONINE [Concomitant]
     Indication: INFECTION PROPHYLAXIS
     Route: 065
     Dates: start: 20040717, end: 20040719

REACTIONS (3)
  - DRUG ERUPTION [None]
  - OEDEMA PERIPHERAL [None]
  - PYREXIA [None]
